FAERS Safety Report 16131609 (Version 1)
Quarter: 2019Q1

REPORT INFORMATION
  Report Type: Spontaneous
  Country: US (occurrence: US)
  Receive Date: 20190329
  Receipt Date: 20190329
  Transmission Date: 20190418
  Serious: No
  Sender: FDA-Public Use
  Company Number: US-JNJFOC-20190306221

PATIENT
  Age: 5 Year
  Sex: Female
  Weight: 22.68 kg

DRUGS (1)
  1. CHILDRENS TYLENOL [Suspect]
     Active Substance: ACETAMINOPHEN
     Indication: PYREXIA
     Dosage: 7.5 ML ONCE
     Route: 048
     Dates: start: 20190302

REACTIONS (1)
  - Generalised erythema [Not Recovered/Not Resolved]

NARRATIVE: CASE EVENT DATE: 20190302
